FAERS Safety Report 5592447-5 (Version None)
Quarter: 2008Q1

REPORT INFORMATION
  Report Type: 
  Country: None (occurrence: None)
  Receive Date: 20080115
  Receipt Date: 20080110
  Transmission Date: 20080703
  Serious: Yes (Hospitalization, Other)
  Sender: FDA-Public Use
  Company Number: US-MERCK-0705USA02830

PATIENT
  Age: 61 Year
  Sex: Female

DRUGS (2)
  1. FOSAMAX [Suspect]
     Indication: OSTEOPOROSIS
     Route: 048
     Dates: start: 20040524
  2. FOSAMAX [Suspect]
     Route: 048
     Dates: end: 20060101

REACTIONS (5)
  - CEREBROVASCULAR ACCIDENT [None]
  - HEART RATE IRREGULAR [None]
  - MELANOCYTIC NAEVUS [None]
  - TEMPOROMANDIBULAR JOINT SYNDROME [None]
  - TOE OPERATION [None]
